FAERS Safety Report 11720151 (Version 1)
Quarter: 2015Q4

REPORT INFORMATION
  Report Type: Spontaneous
  Country: US (occurrence: US)
  Receive Date: 20151110
  Receipt Date: 20151110
  Transmission Date: 20160304
  Serious: No
  Sender: FDA-Public Use
  Company Number: US-PERRIGO-14US011805

PATIENT
  Age: 63 Year
  Sex: Female
  Weight: 46.26 kg

DRUGS (1)
  1. CICLOPIROX RX 8% 3C0 [Suspect]
     Active Substance: CICLOPIROX
     Indication: ONYCHOMYCOSIS
     Dosage: 1 APPLICATION, QD
     Route: 061
     Dates: start: 201407

REACTIONS (2)
  - Drug ineffective [Unknown]
  - Nail disorder [Unknown]

NARRATIVE: CASE EVENT DATE: 201407
